FAERS Safety Report 4545923-8 (Version None)
Quarter: 2005Q1

REPORT INFORMATION
  Report Type: 
  Country: None (occurrence: None)
  Receive Date: 20050103
  Receipt Date: 20041220
  Transmission Date: 20050727
  Serious: Yes (Other)
  Sender: FDA-Public Use
  Company Number: 200416153BCC

PATIENT
  Age: 72 Year
  Sex: Female
  Weight: 88.4514 kg

DRUGS (4)
  1. ALEVE [Suspect]
     Indication: FOOT OPERATION
     Dosage: SEE IMAGE
     Route: 048
     Dates: start: 20041215, end: 20041216
  2. ALEVE [Suspect]
     Indication: FOOT OPERATION
     Dosage: SEE IMAGE
     Route: 048
     Dates: start: 20041201
  3. NAPROXEN [Suspect]
     Dates: end: 20041215
  4. PREVACID [Concomitant]

REACTIONS (1)
  - CHEST PAIN [None]
